FAERS Safety Report 6447542-5 (Version None)
Quarter: 2009Q4

REPORT INFORMATION
  Report Type: 
  Country: None (occurrence: None)
  Receive Date: 20091119
  Receipt Date: 20091109
  Transmission Date: 20100525
  Serious: Yes (Death)
  Sender: FDA-Public Use
  Company Number: BR-MERCK-0911BRA00031

PATIENT
  Age: 88 Year
  Sex: Male

DRUGS (2)
  1. PRIMAXIN [Suspect]
     Indication: PNEUMONIA
     Route: 065
  2. POLYMYXIN B SULFATE [Suspect]
     Route: 065

REACTIONS (1)
  - DEATH [None]
